FAERS Safety Report 7411770-2 (Version None)
Quarter: 2011Q2

REPORT INFORMATION
  Report Type: 
  Country: None (occurrence: None)
  Receive Date: 20110413
  Receipt Date: 20110106
  Transmission Date: 20111010
  Serious: No
  Sender: FDA-Public Use
  Company Number: US-BRISTOL-MYERS SQUIBB COMPANY-15474992

PATIENT
  Sex: Male

DRUGS (2)
  1. ERBITUX [Suspect]
  2. BENADRYL [Concomitant]

REACTIONS (2)
  - ERYTHEMA [None]
  - HEART RATE INCREASED [None]
